FAERS Safety Report 14304150 (Version 1)
Quarter: 2017Q4

REPORT INFORMATION
  Report Type: Spontaneous
  Country: GB (occurrence: GB)
  Receive Date: 20171219
  Receipt Date: 20171219
  Transmission Date: 20180321
  Serious: Yes (Hospitalization)
  Sender: FDA-Public Use
  Company Number: GB-OTSUKA-DJ20070607

PATIENT
  Age: 46 Year
  Sex: Female

DRUGS (6)
  1. ABILIFY [Suspect]
     Active Substance: ARIPIPRAZOLE
     Indication: PSYCHOTIC DISORDER
     Dosage: 10 MG, UNK
     Route: 065
  2. ABILIFY [Suspect]
     Active Substance: ARIPIPRAZOLE
     Dosage: 15 MG, UNK
     Route: 065
  3. PROCYCLIDINE [Concomitant]
     Active Substance: PROCYCLIDINE
     Indication: EXTRAPYRAMIDAL DISORDER
     Dosage: 10 MG, UNK
     Route: 065
  4. AMISULPRIDE [Suspect]
     Active Substance: AMISULPRIDE
     Indication: PSYCHOTIC DISORDER
     Dosage: 1200 MG, UNK
     Route: 065
  5. ABILIFY [Suspect]
     Active Substance: ARIPIPRAZOLE
     Dosage: 20 MG, UNK
     Route: 065
  6. AMISULPRIDE [Suspect]
     Active Substance: AMISULPRIDE
     Dosage: 1600 MG, UNK
     Route: 065

REACTIONS (6)
  - Anxiety [Recovered/Resolved]
  - Gait disturbance [Recovered/Resolved]
  - Vision blurred [Recovered/Resolved]
  - Extrapyramidal disorder [Recovered/Resolved]
  - Musculoskeletal stiffness [Recovered/Resolved]
  - Acute psychosis [Unknown]
